FAERS Safety Report 4283619-0 (Version None)
Quarter: 2004Q1

REPORT INFORMATION
  Report Type: 
  Country: None (occurrence: None)
  Receive Date: 20040129
  Receipt Date: 20040129
  Transmission Date: 20041129
  Serious: Yes (Life-Threatening)
  Sender: FDA-Public Use
  Company Number: None

PATIENT
  Age: 77 Year
  Sex: Female
  Weight: 65.318 kg

DRUGS (15)
  1. MOXIFLOXACIN HCL [Suspect]
     Indication: ASTHMA
     Dosage: 400 MG PO QD
     Route: 048
  2. ASPIRIN [Suspect]
     Indication: CORONARY ARTERY DISEASE
     Dosage: 325 MG PO
     Route: 048
  3. EVISTA [Concomitant]
  4. ALDACTONE [Concomitant]
  5. BENICOR [Concomitant]
  6. PLAVIX [Concomitant]
  7. COQ10 [Concomitant]
  8. OMEGA 3 [Concomitant]
  9. VIT E [Concomitant]
  10. M VITS [Concomitant]
  11. MG [Concomitant]
  12. FOLIC ACID [Concomitant]
  13. SELENIUM TRACE METAL ADDITIVE [Concomitant]
  14. IP6 [Concomitant]
  15. CA [Concomitant]

REACTIONS (2)
  - CARDIAC ARREST [None]
  - DRUG INTERACTION [None]
